FAERS Safety Report 12431224 (Version 3)
Quarter: 2016Q3

REPORT INFORMATION
  Report Type: Report from Study
  Country: JP (occurrence: JP)
  Receive Date: 20160603
  Receipt Date: 20160816
  Transmission Date: 20161109
  Serious: Yes (Death, Hospitalization, Other)
  Sender: FDA-Public Use
  Company Number: JP-ROCHE-1675609

PATIENT
  Age: 66 Year
  Sex: Female
  Weight: 47 kg

DRUGS (10)
  1. BEVACIZUMAB [Suspect]
     Active Substance: BEVACIZUMAB
     Indication: BREAST CANCER
     Dosage: THE FRACTIONATION DOSE FREQUENCY IS UNCERTAIN. ?DOSE INTERVAL UNCERTAINTY
     Route: 041
     Dates: start: 20151124, end: 20151124
  2. PACLITAXEL. [Suspect]
     Active Substance: PACLITAXEL
     Indication: BREAST CANCER
     Dosage: DOSE INTERVAL UNCERTAINTY
     Route: 041
     Dates: start: 20160105, end: 20160112
  3. TAPENTADOL HYDROCHLORIDE [Suspect]
     Active Substance: TAPENTADOL HYDROCHLORIDE
     Indication: CANCER PAIN
     Dosage: DOSAGE IS UNCERTAIN.
     Route: 065
  4. ZOMETA [Concomitant]
     Active Substance: ZOLEDRONIC ACID
     Dosage: THE FRACTIONATION DOSE FREQUENCY IS UNCERTAIN. ?DOSE INTERVAL UNCERTAINTY
     Route: 065
     Dates: start: 20151124, end: 20151222
  5. ABSTRAL [Concomitant]
     Active Substance: FENTANYL CITRATE
     Indication: CANCER PAIN
     Dosage: PROPERLY
     Route: 065
     Dates: start: 20151225, end: 20160118
  6. PACLITAXEL. [Suspect]
     Active Substance: PACLITAXEL
     Indication: BREAST CANCER
     Dosage: NEXT CONSEQUITIVE DOSES, 22/DEC/2015, 05/JAN/2016 AND 12/JAN/2016
     Route: 041
     Dates: start: 20151208, end: 20160112
  7. BEVACIZUMAB [Suspect]
     Active Substance: BEVACIZUMAB
     Indication: BREAST CANCER
     Dosage: NEXT CONSEQUITIVE DOSES, 22/DEC/2015, 05/JAN/2016 AND 12/JAN/2016
     Route: 041
     Dates: start: 20151208, end: 20160105
  8. OXYCONTIN [Concomitant]
     Active Substance: OXYCODONE HYDROCHLORIDE
     Indication: CANCER PAIN
     Dosage: PROPERLY
     Route: 065
  9. PACLITAXEL. [Suspect]
     Active Substance: PACLITAXEL
     Indication: BREAST CANCER
     Dosage: THE FRACTIONATION DOSE FREQUENCY IS UNCERTAIN. ?DOSE INTERVAL UNCERTAINTY
     Route: 041
     Dates: start: 20151124, end: 20151124
  10. FENTOS (JAPAN) [Concomitant]
     Active Substance: FENTANYL
     Indication: CANCER PAIN
     Dosage: PROPERLY
     Route: 065

REACTIONS (19)
  - Malaise [Unknown]
  - Hyperthermia [Unknown]
  - Shock [Unknown]
  - Pulmonary congestion [Unknown]
  - Blood pressure decreased [Unknown]
  - Vomiting [Unknown]
  - Diarrhoea [Unknown]
  - Dizziness [Recovered/Resolved]
  - Depressed level of consciousness [Unknown]
  - White blood cell count decreased [Unknown]
  - Nausea [Recovering/Resolving]
  - Pancreatitis acute [Unknown]
  - Acute respiratory failure [Fatal]
  - Decreased appetite [Recovering/Resolving]
  - Febrile neutropenia [Unknown]
  - Glomerulosclerosis [Unknown]
  - Circulatory collapse [Fatal]
  - Constipation [Recovering/Resolving]
  - Electrolyte imbalance [Unknown]

NARRATIVE: CASE EVENT DATE: 20151124
